FAERS Safety Report 25751554 (Version 1)
Quarter: 2025Q3

REPORT INFORMATION
  Report Type: Spontaneous
  Country: EU (occurrence: EU)
  Receive Date: 20250902
  Receipt Date: 20250902
  Transmission Date: 20251020
  Serious: Yes (Death)
  Sender: CELLTRION
  Company Number: None

PATIENT

DRUGS (6)
  1. VEGZELMA [Suspect]
     Active Substance: BEVACIZUMAB-ADCD
     Indication: Hepatocellular carcinoma
     Route: 042
     Dates: start: 20250522, end: 20250522
  2. VEGZELMA [Suspect]
     Active Substance: BEVACIZUMAB-ADCD
     Route: 042
     Dates: start: 20250612, end: 20250612
  3. VEGZELMA [Suspect]
     Active Substance: BEVACIZUMAB-ADCD
     Route: 042
     Dates: start: 20250703, end: 20250703
  4. TECENTRIQ [Suspect]
     Active Substance: ATEZOLIZUMAB
     Indication: Hepatocellular carcinoma
     Route: 042
     Dates: start: 20250522, end: 20250522
  5. TECENTRIQ [Suspect]
     Active Substance: ATEZOLIZUMAB
     Route: 042
     Dates: start: 20250612, end: 20250612
  6. TECENTRIQ [Suspect]
     Active Substance: ATEZOLIZUMAB
     Route: 042
     Dates: start: 20250703, end: 20250703

REACTIONS (2)
  - Thyroiditis [Fatal]
  - Intentional product use issue [Unknown]

NARRATIVE: CASE EVENT DATE: 20250802
